FAERS Safety Report 8556451 (Version 2)
Quarter: 2013Q4

REPORT INFORMATION
  Report Type: Spontaneous
  Country: GB (occurrence: GB)
  Receive Date: 20120510
  Receipt Date: 20131008
  Transmission Date: 20140711
  Serious: Yes (Other)
  Sender: FDA-Public Use
  Company Number: PHHY2012GB039025

PATIENT
  Age: 57 Year
  Sex: Male

DRUGS (5)
  1. RAMIPRIL [Suspect]
     Indication: BLOOD PRESSURE
     Dosage: 2.5 MG, UNK
     Route: 048
  2. RAMIPRIL [Suspect]
     Indication: HYPERTENSION
  3. TOPIRAMATE [Concomitant]
     Indication: EPILEPSY
     Dosage: 50 MG, BID
     Route: 048
  4. TEGRETOL [Concomitant]
     Indication: EPILEPSY
     Dosage: 400 MG, BID
     Route: 048
  5. AMLODIPINE [Concomitant]
     Indication: HYPERTENSION
     Dosage: 10 MG, QD
     Route: 048

REACTIONS (1)
  - Epilepsy [Unknown]
